FAERS Safety Report 4830086-1 (Version None)
Quarter: 2005Q4

REPORT INFORMATION
  Report Type: 
  Country: None (occurrence: None)
  Receive Date: 20051114
  Receipt Date: 20051027
  Transmission Date: 20060501
  Serious: Yes (Hospitalization)
  Sender: FDA-Public Use
  Company Number: 219239

PATIENT
  Age: 63 Year
  Sex: Male

DRUGS (3)
  1. AVASTIN [Suspect]
     Indication: COLORECTAL CANCER
     Dosage: 975 MG, Q3W; INTRAVENOUS
     Route: 042
     Dates: start: 20050928
  2. CAPECITABINE (CAPECITABINE) [Suspect]
     Indication: COLORECTAL CANCER
     Dosage: 2000 MG, Q3W; ORAL
     Route: 048
     Dates: start: 20050928
  3. OXALIPLATIN (OXALIPLATIN) [Suspect]
     Indication: COLORECTAL CANCER
     Dosage: 310 MG, Q3W, INTRAVENOUS
     Route: 042
     Dates: start: 20050928

REACTIONS (1)
  - DRUG HYPERSENSITIVITY [None]
